FAERS Safety Report 5832658-4 (Version None)
Quarter: 2008Q3

REPORT INFORMATION
  Report Type: 
  Country: None (occurrence: None)
  Receive Date: 20080804
  Receipt Date: 20080728
  Transmission Date: 20090109
  Serious: Yes (Death, Other)
  Sender: FDA-Public Use
  Company Number: PHHY2008JP14402

PATIENT
  Age: 71 Year
  Sex: Male

DRUGS (6)
  1. ZOMETA [Suspect]
     Dosage: UNK
     Route: 042
     Dates: start: 20040601
  2. AREDIA [Suspect]
     Dosage: UNK
     Route: 042
     Dates: start: 20040601
  3. PREDNISONE [Concomitant]
  4. MELPHALAN [Concomitant]
  5. VINCRISTINE [Concomitant]
     Indication: NEOPLASM
  6. VINCRISTINE [Concomitant]
     Indication: LUNG NEOPLASM MALIGNANT

REACTIONS (9)
  - ABSCESS [None]
  - BONE LESION [None]
  - IMPAIRED HEALING [None]
  - MALIGNANT NEOPLASM PROGRESSION [None]
  - NEOPLASM PROGRESSION [None]
  - OSTEOMYELITIS [None]
  - OSTEONECROSIS [None]
  - SEQUESTRECTOMY [None]
  - TOOTH EXTRACTION [None]
